FAERS Safety Report 6816518-8 (Version None)
Quarter: 2010Q3

REPORT INFORMATION
  Report Type: 
  Country: None (occurrence: None)
  Receive Date: 20100706
  Receipt Date: 20100625
  Transmission Date: 20110219
  Serious: Yes (Other)
  Sender: FDA-Public Use
  Company Number: US-RB-012518-10

PATIENT
  Age: 16 Year
  Sex: Female

DRUGS (1)
  1. DELSYM ADULT GRAPE 3 OZ [Suspect]
     Route: 048
     Dates: start: 20100401

REACTIONS (3)
  - HALLUCINATION [None]
  - INSOMNIA [None]
  - TREMOR [None]
